FAERS Safety Report 5568991-3 (Version None)
Quarter: 2007Q4

REPORT INFORMATION
  Report Type: 
  Country: None (occurrence: None)
  Receive Date: 20071220
  Receipt Date: 20070426
  Transmission Date: 20080405
  Serious: No
  Sender: FDA-Public Use
  Company Number: A0648896A

PATIENT
  Age: 79 Year
  Sex: Male

DRUGS (6)
  1. AVODART [Suspect]
     Indication: DRUG USE FOR UNKNOWN INDICATION
     Route: 048
  2. LEXAPRO [Concomitant]
  3. AMBIEN [Concomitant]
  4. BLOOD THINNER [Concomitant]
  5. NASONEX [Concomitant]
  6. CLARITIN [Concomitant]

REACTIONS (2)
  - BREAST SWELLING [None]
  - COUGH [None]
